FAERS Safety Report 4863454-2 (Version None)
Quarter: 2005Q4

REPORT INFORMATION
  Report Type: 
  Country: None (occurrence: None)
  Receive Date: 20051222
  Receipt Date: 20050208
  Transmission Date: 20060501
  Serious: No
  Sender: FDA-Public Use
  Company Number: US-GLAXOSMITHKLINE-A0544521A

PATIENT
  Age: 48 Year
  Sex: Female

DRUGS (5)
  1. FLONASE [Suspect]
     Dosage: 1SPR TWICE PER DAY
     Route: 045
     Dates: start: 20040401
  2. SLEEPING MEDICATION [Concomitant]
     Route: 065
  3. BLOOD PRESSURE MED [Concomitant]
  4. ALLEGRA [Concomitant]
  5. MUSCLE RELAXER [Concomitant]

REACTIONS (2)
  - AGEUSIA [None]
  - ANOSMIA [None]
